FAERS Safety Report 19266993 (Version 2)
Quarter: 2021Q3

REPORT INFORMATION
  Report Type: Spontaneous
  Country: JP (occurrence: JP)
  Receive Date: 20210518
  Receipt Date: 20210707
  Transmission Date: 20211014
  Serious: Yes (Death)
  Sender: FDA-Public Use
  Company Number: JP-ROCHE-2831485

PATIENT
  Age: 70 Year
  Sex: Male
  Weight: 71 kg

DRUGS (7)
  1. APREPITANT. [Concomitant]
     Active Substance: APREPITANT
     Dosage: UNK, QD
     Route: 065
     Dates: start: 20210409, end: 20210411
  2. DEXART [Concomitant]
     Active Substance: DEXAMETHASONE SODIUM PHOSPHATE
     Dosage: UNK, QD
     Route: 065
     Dates: start: 20210409, end: 20210409
  3. AVASTIN [Suspect]
     Active Substance: BEVACIZUMAB
     Indication: COLON CANCER
     Route: 041
     Dates: start: 20210409, end: 20210409
  4. GRANISETRON [Concomitant]
     Active Substance: GRANISETRON
     Dosage: UNK, QD
     Route: 016
     Dates: start: 20210409, end: 20210409
  5. OXALIPLATIN. [Concomitant]
     Active Substance: OXALIPLATIN
     Dosage: UNK
     Dates: start: 20210409, end: 20210409
  6. CAPECITABINE. [Concomitant]
     Active Substance: CAPECITABINE
     Indication: COLON CANCER
     Route: 048
     Dates: start: 20210409, end: 20210423
  7. RESTAMIN KOWA [Concomitant]
     Dosage: UNK, QD
     Route: 065
     Dates: start: 20210409, end: 20210409

REACTIONS (1)
  - Cardiac failure chronic [Fatal]

NARRATIVE: CASE EVENT DATE: 20210429
